FAERS Safety Report 7964821-0 (Version None)
Quarter: 2011Q4

REPORT INFORMATION
  Report Type: 
  Country: None (occurrence: None)
  Receive Date: 20111208
  Receipt Date: 20111128
  Transmission Date: 20120403
  Serious: Yes (Other)
  Sender: FDA-Public Use
  Company Number: PHHY2011DE93429

PATIENT
  Sex: Female

DRUGS (3)
  1. SEROQUEL [Concomitant]
     Dosage: 25 MG, PER DAY
     Route: 048
  2. MIRTAZAPINE [Concomitant]
     Dosage: 30 MG,  PER DAY
     Route: 048
  3. EXELON [Suspect]
     Indication: DEMENTIA ALZHEIMER'S TYPE
     Dosage: 6 MG, BID
     Route: 048

REACTIONS (4)
  - GAIT DISTURBANCE [None]
  - DIZZINESS [None]
  - FALL [None]
  - NAUSEA [None]
